FAERS Safety Report 10297149 (Version 1)
Quarter: 2014Q3

REPORT INFORMATION
  Report Type: Spontaneous
  Country: US (occurrence: US)
  Receive Date: 20140711
  Receipt Date: 20140711
  Transmission Date: 20150326
  Serious: No
  Sender: FDA-Public Use
  Company Number: US-BIOGENIDEC-2014BI067211

PATIENT
  Sex: Female

DRUGS (1)
  1. TYSABRI [Suspect]
     Active Substance: NATALIZUMAB
     Indication: MULTIPLE SCLEROSIS
     Route: 042
     Dates: start: 20090917

REACTIONS (7)
  - Memory impairment [Not Recovered/Not Resolved]
  - Feeling abnormal [Not Recovered/Not Resolved]
  - Urine odour abnormal [Recovered/Resolved]
  - Paranoia [Not Recovered/Not Resolved]
  - Urinary tract infection [Recovered/Resolved]
  - Urine abnormality [Recovered/Resolved]
  - Rash [Not Recovered/Not Resolved]
